FAERS Safety Report 10224662 (Version 12)
Quarter: 2020Q1

REPORT INFORMATION
  Report Type: Spontaneous
  Country: US (occurrence: US)
  Receive Date: 20140609
  Receipt Date: 20200227
  Transmission Date: 20200409
  Serious: Yes (Disabling, Other)
  Sender: FDA-Public Use
  Company Number: US-009507513-1406USA001931

PATIENT
  Sex: Male
  Weight: 100.68 kg

DRUGS (5)
  1. PROPECIA [Suspect]
     Active Substance: FINASTERIDE
     Dosage: 1 MILLIGRAM
     Route: 048
     Dates: start: 19980909
  2. FINASTERIDE. [Suspect]
     Active Substance: FINASTERIDE
     Route: 048
  3. PROSCAR [Suspect]
     Active Substance: FINASTERIDE
     Dosage: 5 MILLIGRAM (1/4 Q DAY)
     Route: 065
     Dates: start: 20020509
  4. PROSCAR [Suspect]
     Active Substance: FINASTERIDE
     Indication: ALOPECIA
     Dosage: 1/4
     Route: 048
     Dates: start: 20000417
  5. PROSCAR [Suspect]
     Active Substance: FINASTERIDE
     Dosage: 1 MILLIGRAM 1/2 TABLET, QD (QUIT AFTER 1 YEARS USE)
     Route: 048

REACTIONS (32)
  - Asthenia [Unknown]
  - Primary hypogonadism [Unknown]
  - Libido decreased [Not Recovered/Not Resolved]
  - Fatigue [Unknown]
  - Oropharyngeal pain [Unknown]
  - Cough [Unknown]
  - Anorgasmia [Not Recovered/Not Resolved]
  - Anxiety [Unknown]
  - Circadian rhythm sleep disorder [Unknown]
  - Fatigue [Unknown]
  - Palpitations [Unknown]
  - Pyrexia [Unknown]
  - Endocrine disorder [Not Recovered/Not Resolved]
  - Blood testosterone increased [Not Recovered/Not Resolved]
  - Haematocrit increased [Unknown]
  - Chills [Unknown]
  - Ear congestion [Unknown]
  - Headache [Unknown]
  - Loss of libido [Unknown]
  - Gynaecomastia [Recovered/Resolved]
  - Rhinorrhoea [Unknown]
  - Androgen deficiency [Recovered/Resolved]
  - Erectile dysfunction [Not Recovered/Not Resolved]
  - Alopecia [Unknown]
  - Lethargy [Unknown]
  - Muscle disorder [Unknown]
  - Goitre [Unknown]
  - Asthenia [Unknown]
  - Haemoglobin increased [Unknown]
  - Hypogonadism male [Not Recovered/Not Resolved]
  - Male sexual dysfunction [Not Recovered/Not Resolved]
  - Blood thyroid stimulating hormone decreased [Unknown]

NARRATIVE: CASE EVENT DATE: 2002
